FAERS Safety Report 19641305 (Version 2)
Quarter: 2021Q3

REPORT INFORMATION
  Report Type: Spontaneous
  Country: US (occurrence: US)
  Receive Date: 20210730
  Receipt Date: 20210806
  Transmission Date: 20211014
  Serious: Yes (Death)
  Sender: FDA-Public Use
  Company Number: NVSC2021US171168

PATIENT
  Age: 47 Year
  Sex: Female
  Weight: 69.84 kg

DRUGS (95)
  1. ATORVASTATIN [Concomitant]
     Active Substance: ATORVASTATIN
     Dosage: 1 DF, QHS
     Route: 048
     Dates: start: 20210701
  2. BUMETANIDE. [Concomitant]
     Active Substance: BUMETANIDE
     Dosage: 1 DF, QD
     Route: 048
     Dates: start: 20210701, end: 20210713
  3. FLUTICASONE PROPIONATE. [Concomitant]
     Active Substance: FLUTICASONE PROPIONATE
     Dosage: 1 SPRAY EACH NOSTRIL, BID
     Route: 045
     Dates: start: 20210713
  4. FOLIC ACID. [Concomitant]
     Active Substance: FOLIC ACID
     Indication: FOLATE DEFICIENCY
     Dosage: 2.5 DF, QD
     Route: 048
     Dates: start: 20210521, end: 20210629
  5. PANTOPRAZOLE [Concomitant]
     Active Substance: PANTOPRAZOLE
     Indication: GASTROOESOPHAGEAL REFLUX DISEASE
     Dosage: 1 DF, BID
     Route: 048
     Dates: start: 20210521, end: 20210629
  6. HYDROXYZINE HCL [Concomitant]
     Active Substance: HYDROXYZINE HYDROCHLORIDE
     Indication: AGITATION
     Dosage: 1 DF, PRN (MORNING)
     Route: 048
     Dates: start: 20210701
  7. LEVSIN [Concomitant]
     Active Substance: HYOSCYAMINE SULFATE
     Indication: BLADDER SPASM
     Dosage: 2 DF, PRN (EVERY 4 HOURS)
     Route: 048
     Dates: start: 20210608, end: 20210628
  8. LEXAPRO [Concomitant]
     Active Substance: ESCITALOPRAM OXALATE
     Indication: MAJOR DEPRESSION
     Dosage: 1 DF, QD
     Route: 048
     Dates: start: 20210701
  9. VALIUM [Concomitant]
     Active Substance: DIAZEPAM
     Indication: PAIN
     Dosage: 1 DF, PRN (EVERY 8 HOURS)
     Route: 048
     Dates: start: 20210608, end: 20210629
  10. TUMS [Concomitant]
     Active Substance: CALCIUM CARBONATE
     Indication: GASTROOESOPHAGEAL REFLUX DISEASE
     Dosage: 1 DF (200 MG CALCIUM), TID
     Route: 048
     Dates: start: 20210701, end: 20210713
  11. KEPPRA [Concomitant]
     Active Substance: LEVETIRACETAM
     Indication: SEIZURE
     Dosage: UNK
     Route: 065
  12. KESIMPTA [Suspect]
     Active Substance: OFATUMUMAB
     Indication: RELAPSING-REMITTING MULTIPLE SCLEROSIS
     Dosage: 1 DF, QW
     Route: 058
     Dates: start: 20210624, end: 20210629
  13. FLUVOXAMINE [Concomitant]
     Active Substance: FLUVOXAMINE
     Indication: DEPRESSION
     Dosage: 50 MG, QHS
     Route: 048
     Dates: start: 20210521, end: 20210629
  14. LACTULOSE. [Concomitant]
     Active Substance: LACTULOSE
     Indication: CONSTIPATION
     Dosage: 60 ML, BID (10G/15 ML)
     Route: 048
     Dates: start: 20210608, end: 20210629
  15. TRAZODONE [Concomitant]
     Active Substance: TRAZODONE HYDROCHLORIDE
     Indication: PRODUCT USED FOR UNKNOWN INDICATION
     Dosage: 50 MG, QHS
     Route: 048
     Dates: start: 20210614, end: 20210629
  16. FIBER LAXATIVE [Concomitant]
     Active Substance: CALCIUM POLYCARBOPHIL
     Indication: CONSTIPATION
     Dosage: 2 DF, QD
     Route: 048
     Dates: start: 20210702
  17. VALIUM [Concomitant]
     Active Substance: DIAZEPAM
     Indication: MUSCLE SPASMS
     Dosage: 1 DF, PRN (EVERY 6 HOURS)
     Route: 048
     Dates: start: 20210714
  18. BISACODYL. [Concomitant]
     Active Substance: BISACODYL
     Dosage: 10 MG, QD
     Route: 054
     Dates: start: 20210701, end: 20210713
  19. IBUPROFEN. [Concomitant]
     Active Substance: IBUPROFEN
     Dosage: 3 DF, PRN (EVERY 6 HOURS)
     Route: 048
     Dates: start: 20210713
  20. DIAZEPAM. [Concomitant]
     Active Substance: DIAZEPAM
     Indication: ANXIETY
     Dosage: 1 DF, Q12H
     Route: 065
     Dates: start: 20210701, end: 20210713
  21. SOLU?MEDROL [Concomitant]
     Active Substance: METHYLPREDNISOLONE SODIUM SUCCINATE
     Indication: PRODUCT USED FOR UNKNOWN INDICATION
     Dosage: 1000 MG IN 250 ML NORMAL SALAINE
     Route: 041
  22. ENULOSE [Concomitant]
     Active Substance: LACTULOSE
     Indication: PRODUCT USED FOR UNKNOWN INDICATION
     Dosage: UNK (10G/15 ML)
     Route: 048
  23. COPAXONE [Concomitant]
     Active Substance: GLATIRAMER ACETATE
     Indication: PRODUCT USED FOR UNKNOWN INDICATION
     Dosage: UNK (3 TIMES IN A WEEK) (MONDAY, WEDNESDAY AND FRIDAY)
     Route: 058
  24. APLISOL [Concomitant]
     Active Substance: TUBERCULIN PURIFIED PROTEIN DERIVATIVE
     Dosage: 0.1 ML, ONCE/SINGLE
     Route: 023
     Dates: start: 20210713, end: 20210713
  25. LEVETIRACETAM. [Concomitant]
     Active Substance: LEVETIRACETAM
     Indication: STATUS EPILEPTICUS
  26. PYRIDOXINE [Concomitant]
     Active Substance: PYRIDOXINE
     Indication: VITAMIN B6 DEFICIENCY
     Dosage: 1 DF, QD
     Route: 048
     Dates: start: 20210521, end: 20210629
  27. PYRIDOXINE [Concomitant]
     Active Substance: PYRIDOXINE
     Dosage: 1 DF, QD
     Route: 048
     Dates: start: 20210713
  28. ACETAMINOPHEN. [Concomitant]
     Active Substance: ACETAMINOPHEN
     Dosage: 1000 MG, PRN (EVERY 8 HOURS)
     Route: 048
     Dates: start: 20210701, end: 20210713
  29. SIMETHICONE (DIMETHICONE) [Concomitant]
     Active Substance: DIMETHICONE
     Indication: PRODUCT USED FOR UNKNOWN INDICATION
     Dosage: 1 DF, QD
     Route: 048
     Dates: start: 20210601, end: 20210629
  30. LACTULOSE. [Concomitant]
     Active Substance: LACTULOSE
     Dosage: 60 ML, BID (10G/15 ML)
     Route: 048
     Dates: start: 20210701
  31. POLYETHYLENE GLYCOL 3350. [Concomitant]
     Active Substance: POLYETHYLENE GLYCOL 3350
     Indication: CONSTIPATION
     Dosage: 17 G, TID
     Route: 048
     Dates: start: 20210608, end: 20210629
  32. SENNA?S [Concomitant]
     Active Substance: DOCUSATE SODIUM\SENNOSIDES
     Indication: CONSTIPATION
     Dosage: 2 DF, BID
     Route: 048
     Dates: start: 20210701
  33. FLORASTOR [Concomitant]
     Active Substance: SACCHAROMYCES CEREVISIAE
     Indication: GASTROINTESTINAL DISORDER PROPHYLAXIS
     Dosage: 1 DF, BID
     Route: 065
     Dates: start: 20210713, end: 20210723
  34. KESIMPTA [Suspect]
     Active Substance: OFATUMUMAB
     Dosage: 0.4 ML
     Route: 058
     Dates: start: 20210722
  35. FOLIC ACID. [Concomitant]
     Active Substance: FOLIC ACID
     Dosage: 2.5 DF, QD
     Route: 048
     Dates: start: 20210701
  36. LEVETIRACETAM. [Concomitant]
     Active Substance: LEVETIRACETAM
     Indication: SEIZURE
     Dosage: 500 MG, BID
     Route: 048
     Dates: start: 20210521, end: 20210629
  37. MELATONIN [Concomitant]
     Active Substance: MELATONIN
     Indication: INSOMNIA
     Dosage: 1 DF, QHS
     Route: 048
     Dates: start: 20210521, end: 20210629
  38. MELATONIN [Concomitant]
     Active Substance: MELATONIN
     Dosage: 1 DF, QHS
     Route: 048
     Dates: start: 20210701
  39. ACETAMINOPHEN. [Concomitant]
     Active Substance: ACETAMINOPHEN
     Dosage: 650 MG, PRN (EVERY 8 HOURS)
     Route: 048
     Dates: start: 20210713
  40. ZOFRAN [Concomitant]
     Active Substance: ONDANSETRON HYDROCHLORIDE
     Indication: NAUSEA
     Dosage: 1 DF, PRN (EVERY 8 HOURS)
     Route: 048
     Dates: start: 20210312, end: 20210629
  41. GABAPENTIN. [Concomitant]
     Active Substance: GABAPENTIN
     Indication: MULTIPLE SCLEROSIS
     Dosage: 1 DF, TID
     Route: 048
     Dates: start: 20210622, end: 20210629
  42. GABAPENTIN. [Concomitant]
     Active Substance: GABAPENTIN
     Indication: STATUS EPILEPTICUS
  43. SENNA [Concomitant]
     Active Substance: SENNA LEAF\SENNOSIDES\SENNOSIDES A AND B
     Indication: CONSTIPATION
     Dosage: 2 DF, BID
     Route: 048
     Dates: start: 20210623, end: 20210629
  44. LEVSIN [Concomitant]
     Active Substance: HYOSCYAMINE SULFATE
     Dosage: 2 DF, TID
     Route: 048
     Dates: start: 20210628, end: 20210629
  45. TYLENOL EXTRA STRENGTH [Concomitant]
     Active Substance: ACETAMINOPHEN
     Indication: PRODUCT USED FOR UNKNOWN INDICATION
     Dosage: 2 DF ONE HOUR PRIOR TO INFUSION
     Route: 048
  46. KESIMPTA [Suspect]
     Active Substance: OFATUMUMAB
     Dosage: 1 DF, QW
     Route: 058
     Dates: start: 20210701, end: 20210708
  47. APLISOL [Concomitant]
     Active Substance: TUBERCULIN PURIFIED PROTEIN DERIVATIVE
     Indication: PRODUCT USED FOR UNKNOWN INDICATION
     Dosage: 0.1 ML, ONCE/SINGLE
     Route: 023
     Dates: start: 20210701, end: 20210701
  48. BUSPIRONE [Concomitant]
     Active Substance: BUSPIRONE HYDROCHLORIDE
     Indication: ANXIETY
     Dosage: 1 DF, BID (7?11 AM; 7?11 PM)
     Route: 048
     Dates: start: 20210521, end: 20210629
  49. FLUTICASONE PROPIONATE. [Concomitant]
     Active Substance: FLUTICASONE PROPIONATE
     Dosage: 2 SPRAYS EACH NOSTRIL, BID
     Route: 045
     Dates: start: 20210701, end: 20210713
  50. FLUVOXAMINE [Concomitant]
     Active Substance: FLUVOXAMINE
     Indication: MAJOR DEPRESSION
     Dosage: 100 MG, QHS
     Route: 048
     Dates: start: 20210701
  51. TAMSULOSIN [Concomitant]
     Active Substance: TAMSULOSIN
     Indication: NEUROGENIC BLADDER
     Dosage: 1 DF, QHS
     Route: 048
     Dates: start: 20210701
  52. OXYBUTYNIN CHLORIDE. [Concomitant]
     Active Substance: OXYBUTYNIN CHLORIDE
     Indication: NEUROGENIC BLADDER
     Dosage: 1 DF, QD
     Route: 048
     Dates: start: 20210522, end: 20210629
  53. SIMETHICONE (DIMETHICONE) [Concomitant]
     Active Substance: DIMETHICONE
     Dosage: 1 DF, QD
     Route: 048
     Dates: start: 20210701
  54. BACLOFEN. [Concomitant]
     Active Substance: BACLOFEN
     Dosage: 1 DF, Q6H
     Route: 048
     Dates: start: 20210703
  55. TOPIRAMATE. [Concomitant]
     Active Substance: TOPIRAMATE
     Indication: EPILEPSY
     Dosage: 1 DF, BID
     Route: 048
     Dates: start: 20210701
  56. IBUPROFEN. [Concomitant]
     Active Substance: IBUPROFEN
     Dosage: 3 DF, PRN (EVERY 6 HOURS)
     Route: 048
     Dates: start: 20210701, end: 20210713
  57. DILAUDID [Concomitant]
     Active Substance: HYDROMORPHONE HYDROCHLORIDE
     Indication: PRODUCT USED FOR UNKNOWN INDICATION
     Dosage: 1 DF, PRN (EVERY 6 HOURS)
     Route: 048
     Dates: start: 20210525, end: 20210629
  58. ATORVASTATIN [Concomitant]
     Active Substance: ATORVASTATIN
     Indication: HYPERLIPIDAEMIA
     Dosage: 1 DF, QHS
     Route: 048
     Dates: start: 20210521, end: 20210629
  59. BUSPIRONE [Concomitant]
     Active Substance: BUSPIRONE HYDROCHLORIDE
     Dosage: 1 DF, BID
     Route: 048
     Dates: start: 20210701
  60. PANTOPRAZOLE [Concomitant]
     Active Substance: PANTOPRAZOLE
     Indication: OESOPHAGITIS
     Dosage: 1 DF, BID
     Route: 048
     Dates: start: 20210701, end: 20210713
  61. ACETAMINOPHEN. [Concomitant]
     Active Substance: ACETAMINOPHEN
     Indication: PAIN
     Dosage: 650 MG, PRN (EVERY 6 HOURS)
     Route: 048
     Dates: start: 20210525, end: 20210629
  62. LIDOCAINE. [Concomitant]
     Active Substance: LIDOCAINE
     Indication: BACK PAIN
     Dosage: 1 DF, BID
     Route: 061
     Dates: start: 20210527, end: 20210629
  63. HYDROXYZINE HCL [Concomitant]
     Active Substance: HYDROXYZINE HYDROCHLORIDE
     Indication: ANXIETY DISORDER
     Dosage: 1 DF, PRN (MORNING)
     Route: 048
     Dates: start: 20210521, end: 20210629
  64. LEVSIN [Concomitant]
     Active Substance: HYOSCYAMINE SULFATE
     Dosage: 2 DF, TID
     Route: 048
     Dates: start: 20210701
  65. LORATADINE. [Concomitant]
     Active Substance: LORATADINE
     Indication: HYPERSENSITIVITY
     Dosage: 10 MG, QD
     Route: 048
     Dates: start: 20210701
  66. POTASSIUM CHLORIDE. [Concomitant]
     Active Substance: POTASSIUM CHLORIDE
     Indication: HYPOKALAEMIA
     Dosage: 1 DF, QD
     Route: 048
     Dates: start: 20210701
  67. AUGMENTIN [Concomitant]
     Active Substance: AMOXICILLIN\CLAVULANATE POTASSIUM
     Indication: URINARY TRACT INFECTION
     Dosage: 1 DF, BID
     Route: 048
     Dates: start: 20210709, end: 20210715
  68. HYDROCHLOROTHIAZIDE. [Concomitant]
     Active Substance: HYDROCHLOROTHIAZIDE
     Indication: PRODUCT USED FOR UNKNOWN INDICATION
     Dosage: 1 DF
     Route: 048
  69. FENTANYL. [Concomitant]
     Active Substance: FENTANYL
     Indication: PAIN
     Dosage: UNK, Q8H (07:00 AM, 03.00 PM, 11.00 PM)
     Route: 062
     Dates: start: 20210528, end: 20210629
  70. FLUTICASONE PROPIONATE. [Concomitant]
     Active Substance: FLUTICASONE PROPIONATE
     Indication: NASAL CONGESTION
     Dosage: 50 UG, BID (1 SPRAY) (SPRAY SUSPENSION)
     Route: 045
     Dates: start: 20210521, end: 20210629
  71. LEVETIRACETAM. [Concomitant]
     Active Substance: LEVETIRACETAM
     Indication: EPILEPSY
     Dosage: 500 MG, BID
     Route: 048
     Dates: start: 20210701
  72. TAMSULOSIN [Concomitant]
     Active Substance: TAMSULOSIN
     Indication: URINARY RETENTION
     Dosage: 1 DF, QHS
     Route: 048
     Dates: start: 20210521, end: 20210629
  73. DULCOLAX NOS [Concomitant]
     Active Substance: BISACODYL OR DOCUSATE SODIUM
     Indication: PRODUCT USED FOR UNKNOWN INDICATION
     Dosage: 1 DF, QHS
     Route: 065
     Dates: start: 20210608, end: 20210629
  74. BACLOFEN. [Concomitant]
     Active Substance: BACLOFEN
     Indication: MUSCLE SPASMS
     Dosage: 1 DF, Q6H
     Route: 048
     Dates: start: 20210614, end: 20210629
  75. BACLOFEN. [Concomitant]
     Active Substance: BACLOFEN
     Dosage: 1 DF, TID
     Route: 065
     Dates: start: 20210701, end: 20210702
  76. GABAPENTIN. [Concomitant]
     Active Substance: GABAPENTIN
     Indication: EPILEPSY
     Dosage: 1 DF, TID
     Route: 048
     Dates: start: 20210701
  77. TOPIRAMATE. [Concomitant]
     Active Substance: TOPIRAMATE
     Indication: STATUS EPILEPTICUS
  78. IBUPROFEN. [Concomitant]
     Active Substance: IBUPROFEN
     Indication: PAIN
     Dosage: 3 DF, PRN (EVERY 6 HOURS)
     Route: 048
     Dates: start: 20210521, end: 20210629
  79. DILAUDID [Concomitant]
     Active Substance: HYDROMORPHONE HYDROCHLORIDE
     Dosage: 1 DF, PRN (EVERY 6 HOURS)
     Route: 048
     Dates: start: 20210701, end: 20210713
  80. BACTRIM DS [Concomitant]
     Active Substance: SULFAMETHOXAZOLE\TRIMETHOPRIM
     Indication: PRODUCT USED FOR UNKNOWN INDICATION
     Dosage: 1 DF, BID
     Route: 048
  81. DIPHENHYDRAMINE. [Concomitant]
     Active Substance: DIPHENHYDRAMINE
     Indication: PRODUCT USED FOR UNKNOWN INDICATION
     Dosage: 1 DF ONE HOUR PRIOR TO INFUSION
     Route: 048
  82. EPIPEN [Concomitant]
     Active Substance: EPINEPHRINE
     Indication: PRODUCT USED FOR UNKNOWN INDICATION
     Dosage: UNK
     Route: 065
  83. CETAPHIL [Concomitant]
     Indication: PRODUCT USED FOR UNKNOWN INDICATION
     Dosage: UNK, QD (AFFECTED AREA)
     Route: 061
  84. FENTANYL. [Concomitant]
     Active Substance: FENTANYL
     Dosage: 1 DF, EVERY 3 DAYS
     Route: 062
     Dates: start: 20210701, end: 20210713
  85. BUMETANIDE. [Concomitant]
     Active Substance: BUMETANIDE
     Indication: HYPERTENSION
     Dosage: 1 DF, BID (7?11 AM; 7?11 PM)
     Route: 048
     Dates: start: 20210521, end: 20210629
  86. OXYBUTYNIN CHLORIDE. [Concomitant]
     Active Substance: OXYBUTYNIN CHLORIDE
     Dosage: 1 DF, QD
     Route: 048
     Dates: start: 20210701
  87. ZOFRAN [Concomitant]
     Active Substance: ONDANSETRON HYDROCHLORIDE
     Indication: VOMITING
     Dosage: 1 DF, PRN (EVERY 8 HOURS)
     Route: 048
     Dates: start: 20210701
  88. BISACODYL. [Concomitant]
     Active Substance: BISACODYL
     Indication: CONSTIPATION
     Dosage: 10 MG, QHS
     Route: 054
     Dates: start: 20210521, end: 20210629
  89. BISACODYL. [Concomitant]
     Active Substance: BISACODYL
     Dosage: 1 DF, PRN
     Route: 054
     Dates: start: 20210713
  90. TUMS [Concomitant]
     Active Substance: CALCIUM CARBONATE
     Indication: DYSPEPSIA
     Dosage: 1 DF (200 MG CALCIUM), TID
     Route: 048
     Dates: start: 20210521, end: 20210629
  91. TUMS [Concomitant]
     Active Substance: CALCIUM CARBONATE
     Indication: OESOPHAGITIS
     Dosage: 1 DF (200 MG CALCIUM), TID
     Route: 048
     Dates: start: 20210713
  92. FLEET ENEMA [Concomitant]
     Active Substance: SODIUM PHOSPHATE, DIBASIC\SODIUM PHOSPHATE, MONOBASIC
     Indication: CONSTIPATION
     Dosage: 1 DF, PRN (19.7 G/118 ML) (TWICE A DAY)
     Route: 054
     Dates: start: 20210706, end: 20210713
  93. GLYCOPYRROLATE. [Concomitant]
     Active Substance: GLYCOPYRROLATE
     Indication: PRODUCT USED FOR UNKNOWN INDICATION
     Dosage: 1 DF, BID
     Route: 048
  94. ARIPIPRAZOLE. [Concomitant]
     Active Substance: ARIPIPRAZOLE
     Indication: PRODUCT USED FOR UNKNOWN INDICATION
     Dosage: 1 DF, QD
     Route: 048
  95. PRUCALOPRIDE SUCCINATE [Concomitant]
     Active Substance: PRUCALOPRIDE SUCCINATE
     Indication: PRODUCT USED FOR UNKNOWN INDICATION
     Dosage: UNK
     Route: 048

REACTIONS (8)
  - Death [Fatal]
  - Decreased appetite [Unknown]
  - Cognitive disorder [Unknown]
  - Memory impairment [Unknown]
  - Anal incontinence [Unknown]
  - Aphasia [Unknown]
  - Food refusal [Unknown]
  - Lethargy [Unknown]

NARRATIVE: CASE EVENT DATE: 20210719
